FAERS Safety Report 7812836-5 (Version None)
Quarter: 2011Q4

REPORT INFORMATION
  Report Type: 
  Country: None (occurrence: None)
  Receive Date: 20111011
  Receipt Date: 20111003
  Transmission Date: 20120403
  Serious: Yes (Other)
  Sender: FDA-Public Use
  Company Number: 2011SP044261

PATIENT
  Age: 74 Year
  Sex: Female

DRUGS (3)
  1. BISOPROLOL FUMARATE [Concomitant]
  2. MIRTAZAPINE [Suspect]
     Indication: PRODUCT USED FOR UNKNOWN INDICATION
     Dosage: PO; PO
     Route: 048
  3. ALDACTAZIDE [Concomitant]

REACTIONS (1)
  - HYPONATRAEMIA [None]
